FAERS Safety Report 17813349 (Version 2)
Quarter: 2020Q2

REPORT INFORMATION
  Report Type: Spontaneous
  Country: PL (occurrence: PL)
  Receive Date: 20200521
  Receipt Date: 20200623
  Transmission Date: 20200714
  Serious: Yes (Other)
  Sender: FDA-Public Use
  Company Number: PL-MYLANLABS-2020M1049469

PATIENT
  Age: 64 Year
  Sex: Female

DRUGS (3)
  1. GEMCITABINE. [Suspect]
     Active Substance: GEMCITABINE
     Indication: PANCREATIC CARCINOMA
     Dosage: 1000 MILLIGRAM/SQ. METER, DAYS 1, 8 AND 15 EVERY 28 DAYS
     Route: 065
  2. PACLITAXEL. [Suspect]
     Active Substance: PACLITAXEL
     Indication: PANCREATIC CARCINOMA
     Dosage: 125 MILLIGRAM/SQ. METER ON DAYS 1, 8 AND 15 EVERY 28 DAYS
     Route: 065
  3. FILGRASTIM [Suspect]
     Active Substance: FILGRASTIM
     Indication: NEUTROPENIA
     Dosage: 48 MILLION U DOSE 1 X 1 SUBCUTANEOUSLY FOR THREE DAYS
     Route: 058

REACTIONS (6)
  - Neutropenia [Unknown]
  - Asthenia [Unknown]
  - Thrombocytopenia [Unknown]
  - Haematotoxicity [Recovering/Resolving]
  - Alopecia [Unknown]
  - Hypoperfusion [Unknown]
